FAERS Safety Report 6069637-0 (Version None)
Quarter: 2009Q1

REPORT INFORMATION
  Report Type: 
  Country: None (occurrence: None)
  Receive Date: 20090209
  Receipt Date: 20090206
  Transmission Date: 20090719
  Serious: Yes (Life-Threatening, Other)
  Sender: FDA-Public Use
  Company Number: GB-JNJFOC-20090201405

PATIENT
  Age: 11 Year
  Sex: Male

DRUGS (3)
  1. OXYBUTYNIN CHLORIDE [Suspect]
     Indication: HYPERTONIC BLADDER
     Route: 048
  2. OXYBUTYNIN CHLORIDE [Suspect]
     Indication: ENURESIS
     Dosage: NOVEMBER/DECEMBER
     Route: 048
  3. DESMOPRESSIN ACETATE [Suspect]
     Indication: ENURESIS
     Route: 048

REACTIONS (2)
  - AGGRESSION [None]
  - SUICIDAL IDEATION [None]
